FAERS Safety Report 5691529-7 (Version None)
Quarter: 2008Q2

REPORT INFORMATION
  Report Type: 
  Country: None (occurrence: None)
  Receive Date: 20080402
  Receipt Date: 20080324
  Transmission Date: 20081010
  Serious: Yes (Hospitalization)
  Sender: FDA-Public Use
  Company Number: CA-JNJFOC-20080306023

PATIENT

DRUGS (2)
  1. REMICADE [Suspect]
     Indication: CROHN'S DISEASE
  2. REMICADE [Suspect]
     Indication: ANKYLOSING SPONDYLITIS

REACTIONS (3)
  - HEADACHE [None]
  - HYPOAESTHESIA [None]
  - TREMOR [None]
